FAERS Safety Report 6894763-3 (Version None)
Quarter: 2010Q3

REPORT INFORMATION
  Report Type: 
  Country: None (occurrence: None)
  Receive Date: 20100708
  Receipt Date: 20100415
  Transmission Date: 20110219
  Serious: Yes (Other)
  Sender: FDA-Public Use
  Company Number: 2010048565

PATIENT
  Sex: Female

DRUGS (2)
  1. CHANTIX [Suspect]
     Indication: SMOKING CESSATION THERAPY
     Dosage: 0.5 MG, ORAL
     Route: 048
     Dates: start: 20081101
  2. CRESTOR [Concomitant]

REACTIONS (2)
  - ABNORMAL DREAMS [None]
  - DEPRESSION [None]
